FAERS Safety Report 4299325-2 (Version None)
Quarter: 2004Q1

REPORT INFORMATION
  Report Type: 
  Country: None (occurrence: None)
  Receive Date: 20040219
  Receipt Date: 20031121
  Transmission Date: 20041129
  Serious: No
  Sender: FDA-Public Use
  Company Number: US-GLAXOSMITHKLINE-A0440831A

PATIENT
  Sex: Female

DRUGS (2)
  1. LOTRONEX [Suspect]
     Indication: IRRITABLE BOWEL SYNDROME
     Dosage: 1MG ALTERNATE DAYS
     Route: 048
     Dates: start: 20030901, end: 20031121
  2. BIRTH CONTROL [Concomitant]

REACTIONS (1)
  - CONSTIPATION [None]
